FAERS Safety Report 23657940 (Version 1)
Quarter: 2024Q1

REPORT INFORMATION
  Report Type: Spontaneous
  Country: US (occurrence: None)
  Receive Date: 20240320
  Receipt Date: 20240320
  Transmission Date: 20240410
  Serious: Yes (Other)
  Sender: FDA-Public Use
  Company Number: None

PATIENT
  Age: 77 Year
  Sex: Male

DRUGS (8)
  1. SOTYKTU [Suspect]
     Active Substance: DEUCRAVACITINIB
     Indication: Psoriasis
     Dosage: FREQUENCY : DAILY;?
     Route: 048
     Dates: start: 20240223, end: 20240313
  2. Albuterol HFA (Cipla) [Concomitant]
  3. ATORVASTATIN CALCIUM [Concomitant]
     Active Substance: ATORVASTATIN CALCIUM
  4. Clopidogrel (Dr Reddys) [Concomitant]
  5. Latanoprost 0.005% (Sandoz) [Concomitant]
  6. Lisinopril (SOLCO) [Concomitant]
  7. Tamsulosin (Zydus) [Concomitant]
  8. Trelegy (GSK) [Concomitant]

REACTIONS (1)
  - Osteomyelitis [None]

NARRATIVE: CASE EVENT DATE: 20240313
